FAERS Safety Report 8380160-0 (Version None)
Quarter: 2012Q2

REPORT INFORMATION
  Report Type: 
  Country: None (occurrence: None)
  Receive Date: 20120523
  Receipt Date: 20120516
  Transmission Date: 20120825
  Serious: No
  Sender: FDA-Public Use
  Company Number: US-PFIZER INC-2012120215

PATIENT
  Sex: Female

DRUGS (1)
  1. MEDROXYPROGESTERONE ACETATE [Suspect]
     Dosage: UNK

REACTIONS (4)
  - METRORRHAGIA [None]
  - BREAST TENDERNESS [None]
  - INCORRECT STORAGE OF DRUG [None]
  - MOOD ALTERED [None]
